FAERS Safety Report 5924861-X (Version None)
Quarter: 2008Q4

REPORT INFORMATION
  Report Type: 
  Country: None (occurrence: None)
  Receive Date: 20081017
  Receipt Date: 20081017
  Transmission Date: 20090506
  Serious: Yes (Hospitalization)
  Sender: FDA-Public Use
  Company Number: None

PATIENT
  Age: 76 Year
  Sex: Female
  Weight: 68 kg

DRUGS (2)
  1. PEROMETHAZINE 25MGML BAXTER HEALTHCARE [Suspect]
     Indication: NAUSEA
     Dosage: 12.5MG Q6H PRN IV BOLUS
     Route: 040
     Dates: start: 20080924, end: 20080924
  2. PEROMETHAZINE 25MGML BAXTER HEALTHCARE [Suspect]
     Indication: VOMITING
     Dosage: 12.5MG Q6H PRN IV BOLUS
     Route: 040
     Dates: start: 20080924, end: 20080924

REACTIONS (1)
  - INFUSION SITE EXTRAVASATION [None]
